FAERS Safety Report 24699055 (Version 1)
Quarter: 2024Q4

REPORT INFORMATION
  Report Type: Spontaneous
  Country: CN (occurrence: CN)
  Receive Date: 20241205
  Receipt Date: 20241205
  Transmission Date: 20250114
  Serious: Yes (Hospitalization, Other)
  Sender: SANOFI AVENTIS
  Company Number: CN-SA-2024SA352031

PATIENT
  Age: 24 Year
  Sex: Female
  Weight: 52.9 kg

DRUGS (8)
  1. TAXOTERE [Suspect]
     Active Substance: DOCETAXEL
     Indication: Neoplasm malignant
     Dosage: 115.000MG 1X
     Route: 041
     Dates: start: 20241105, end: 20241105
  2. TAXOTERE [Suspect]
     Active Substance: DOCETAXEL
     Indication: Breast cancer
  3. PERTUZUMAB [Suspect]
     Active Substance: PERTUZUMAB
     Indication: Neoplasm malignant
     Dosage: 840.000MG 1X
     Route: 041
     Dates: start: 20241105, end: 20241105
  4. PERTUZUMAB [Suspect]
     Active Substance: PERTUZUMAB
     Indication: Breast cancer
  5. CARBOPLATIN [Suspect]
     Active Substance: CARBOPLATIN
     Indication: Neoplasm malignant
     Dosage: 0.650G 1X
     Route: 041
     Dates: start: 20241105, end: 20241105
  6. CARBOPLATIN [Suspect]
     Active Substance: CARBOPLATIN
     Indication: Breast cancer
  7. TRASTUZUMAB [Suspect]
     Active Substance: TRASTUZUMAB
     Indication: Neoplasm malignant
     Dosage: 423.000MG 1X
     Route: 041
     Dates: start: 20241105, end: 20241105
  8. TRASTUZUMAB [Suspect]
     Active Substance: TRASTUZUMAB
     Indication: Breast cancer

REACTIONS (2)
  - Dermatitis acneiform [Recovering/Resolving]
  - Myelosuppression [Recovered/Resolved]

NARRATIVE: CASE EVENT DATE: 20241110
